FAERS Safety Report 10978660 (Version 1)
Quarter: 2015Q2

REPORT INFORMATION
  Report Type: Spontaneous
  Country: SE (occurrence: SE)
  Receive Date: 20150402
  Receipt Date: 20150402
  Transmission Date: 20150821
  Serious: Yes (Other)
  Sender: FDA-Public Use
  Company Number: SE-WATSON-2015-06806

PATIENT
  Age: 58 Year
  Sex: Female

DRUGS (2)
  1. CITALOPRAM [Suspect]
     Active Substance: CITALOPRAM HYDROBROMIDE
     Indication: PRODUCT USED FOR UNKNOWN INDICATION
     Dosage: 20 MG, DAILY - STARTING DOSE, REDUCED TO 5 MG
     Route: 048
     Dates: start: 201309
  2. CITALOPRAM [Suspect]
     Active Substance: CITALOPRAM HYDROBROMIDE
     Dosage: 5 MG, UNK
     Route: 048
     Dates: end: 201310

REACTIONS (5)
  - Suicidal ideation [Recovered/Resolved]
  - Depressed level of consciousness [Recovered/Resolved]
  - Amnesia [Recovered/Resolved]
  - Anxiety [Recovered/Resolved]
  - Depression [Recovered/Resolved]

NARRATIVE: CASE EVENT DATE: 201309
